FAERS Safety Report 5431776-2 (Version None)
Quarter: 2007Q3

REPORT INFORMATION
  Report Type: 
  Country: None (occurrence: None)
  Receive Date: 20070731
  Receipt Date: 20070504
  Transmission Date: 20080115
  Serious: No
  Sender: FDA-Public Use
  Company Number: US200705001727

PATIENT
  Age: 59 Year
  Sex: Female
  Weight: 84.8 kg

DRUGS (5)
  1. BYETTA [Suspect]
     Indication: TYPE 2 DIABETES MELLITUS
     Dosage: 5 UG, 2/D, SUBCUTANEOUS
     Route: 058
     Dates: start: 20070430
  2. GLIPIZIDE [Concomitant]
  3. LOPRESSOR [Concomitant]
  4. DIOVAN HCT [Concomitant]
  5. NORVASC [Concomitant]

REACTIONS (3)
  - BLOOD GLUCOSE INCREASED [None]
  - BLOOD PRESSURE INCREASED [None]
  - HEART RATE INCREASED [None]
